FAERS Safety Report 4746975-2 (Version None)
Quarter: 2005Q3

REPORT INFORMATION
  Report Type: 
  Country: None (occurrence: None)
  Receive Date: 20050815
  Receipt Date: 20050802
  Transmission Date: 20060218
  Serious: Yes (Other)
  Sender: FDA-Public Use
  Company Number: 2005BI005723

PATIENT
  Age: 43 Year
  Sex: Female
  Weight: 77.1115 kg

DRUGS (2)
  1. AVONEX [Suspect]
     Indication: MULTIPLE SCLEROSIS
     Dosage: 30 UG;QW; IM
     Route: 030
     Dates: start: 20050101
  2. BLOOD PRESSURE PILL [Concomitant]

REACTIONS (3)
  - BLOOD PRESSURE INCREASED [None]
  - ENDOMETRIOSIS [None]
  - HEART RATE INCREASED [None]
